APPROVED DRUG PRODUCT: DOXEPIN HYDROCHLORIDE
Active Ingredient: DOXEPIN HYDROCHLORIDE
Strength: EQ 50MG BASE
Dosage Form/Route: CAPSULE;ORAL
Application: A210268 | Product #003 | TE Code: AB
Applicant: CHARTWELL RX SCIENCES LLC
Approved: Sep 4, 2020 | RLD: No | RS: No | Type: RX